FAERS Safety Report 7595160-8 (Version None)
Quarter: 2011Q3

REPORT INFORMATION
  Report Type: 
  Country: None (occurrence: None)
  Receive Date: 20110707
  Receipt Date: 20110628
  Transmission Date: 20111222
  Serious: Yes (Hospitalization)
  Sender: FDA-Public Use
  Company Number: PL-PFIZER INC-2011143366

PATIENT
  Age: 43 Year
  Sex: Male

DRUGS (18)
  1. MIRTAZAPINE [Suspect]
     Indication: MAJOR DEPRESSION
     Dosage: 30MG/DAY
  2. LEVOTHYROXINE [Concomitant]
  3. MIRTAZAPINE [Suspect]
     Dosage: 45MG/DAY
  4. VENLAFAXINE HCL [Suspect]
     Dosage: 150MG/DAY
  5. MIANSERIN [Suspect]
     Indication: DEPRESSION
     Dosage: 30 MG, 1X/DAY, AT NIGHT
  6. CHLORPROTHIXENE [Suspect]
     Dosage: 60MG/DAY
  7. ZALEPLON [Suspect]
     Dosage: AT NIGHT
  8. FLUVOXAMINE [Suspect]
     Indication: MAJOR DEPRESSION
     Dosage: 100MG/DAY
  9. SERTRALINE HYDROCHLORIDE [Suspect]
     Indication: DEPRESSION
     Dosage: 100MG/DAY
  10. VENLAFAXINE HCL [Suspect]
     Indication: DEPRESSION
     Dosage: 75MG/DAY
  11. VALPROATE SODIUM [Suspect]
     Dosage: 600MG/DAY
  12. FLUOXETINE [Suspect]
     Dosage: 20MG/DAY
  13. ZOLPIDEM TARTRATE [Suspect]
     Indication: DEPRESSION
     Dosage: AT NIGHT
  14. CLORAZEPATE DIPOTASSIUM [Suspect]
     Indication: DEPRESSION
     Dosage: 5 MG, 1X/DAY, BEFORE SLEEP
  15. OLANZAPINE [Suspect]
     Dosage: 5 MG, 1X/DAY, AT NIGHT
  16. LORAZEPAM [Suspect]
     Indication: DEPRESSION
     Dosage: 1 TO 2 MG BEFORE SLEEP
  17. MOCLOBEMIDE [Suspect]
     Indication: DEPRESSION
     Dosage: 300MG/DAY
  18. OLANZAPINE [Suspect]
     Dosage: 35MG/DAY

REACTIONS (2)
  - DRUG INEFFECTIVE [None]
  - FRONTOTEMPORAL DEMENTIA [None]
